FAERS Safety Report 20994464 (Version 1)
Quarter: 2022Q2

REPORT INFORMATION
  Report Type: Spontaneous
  Country: US (occurrence: US)
  Receive Date: 20220622
  Receipt Date: 20220622
  Transmission Date: 20220720
  Serious: No
  Sender: FDA-Public Use
  Company Number: US-BAYER-2022A080172

PATIENT
  Age: 72 Year
  Sex: Female
  Weight: 71.202 kg

DRUGS (9)
  1. AVELOX [Suspect]
     Active Substance: MOXIFLOXACIN HYDROCHLORIDE
     Dosage: UNK
  2. ENTRESTO [Concomitant]
     Active Substance: SACUBITRIL\VALSARTAN
     Indication: Cardiac failure
     Dosage: UNK
     Dates: start: 20220127
  3. ASPIRIN [Concomitant]
     Active Substance: ASPIRIN
  4. ALBUTEROL SULFATE [Concomitant]
     Active Substance: ALBUTEROL SULFATE
  5. ATENOLOL [Concomitant]
     Active Substance: ATENOLOL
  6. IBUPROFEN [Concomitant]
     Active Substance: IBUPROFEN
  7. LEVOTHYROXINE SODIUM [Concomitant]
     Active Substance: LEVOTHYROXINE SODIUM
  8. VITAMIN D3 [Concomitant]
     Active Substance: CHOLECALCIFEROL
  9. ZETIA [Concomitant]
     Active Substance: EZETIMIBE

REACTIONS (1)
  - Multiple allergies [None]
